FAERS Safety Report 12483486 (Version 1)
Quarter: 2016Q2

REPORT INFORMATION
  Report Type: Spontaneous
  Country: US (occurrence: US)
  Receive Date: 20160621
  Receipt Date: 20160621
  Transmission Date: 20160815
  Serious: Yes (Other)
  Sender: FDA-Public Use
  Company Number: US-ROCHE-1778458

PATIENT
  Sex: Female

DRUGS (7)
  1. EPINEPHRINE. [Concomitant]
     Active Substance: EPINEPHRINE
     Dosage: PEN
     Route: 065
  2. SYMBICORT [Concomitant]
     Active Substance: BUDESONIDE\FORMOTEROL FUMARATE DIHYDRATE
     Route: 065
  3. ALBUTEROL. [Concomitant]
     Active Substance: ALBUTEROL
     Route: 065
  4. NASONEX [Concomitant]
     Active Substance: MOMETASONE FUROATE
     Route: 065
  5. SINGULAIR [Concomitant]
     Active Substance: MONTELUKAST SODIUM
     Route: 065
  6. ALBUTEROL. [Concomitant]
     Active Substance: ALBUTEROL
     Dosage: NEBULIZER AS NEEDED
     Route: 065
  7. XOLAIR [Suspect]
     Active Substance: OMALIZUMAB
     Indication: ASTHMA
     Dosage: 2 VIALS
     Route: 058

REACTIONS (4)
  - Feeling hot [Recovered/Resolved]
  - Blindness [Recovered/Resolved]
  - Drug hypersensitivity [Not Recovered/Not Resolved]
  - Pharyngeal oedema [Recovered/Resolved]
